FAERS Safety Report 19869687 (Version 1)
Quarter: 2021Q3

REPORT INFORMATION
  Report Type: Spontaneous
  Country: US (occurrence: US)
  Receive Date: 20210923
  Receipt Date: 20210923
  Transmission Date: 20211014
  Serious: No
  Sender: FDA-Public Use
  Company Number: US-BAUSCH-BL-2021-031830

PATIENT
  Sex: Male

DRUGS (2)
  1. TRIENTINE HYDROCHLORIDE. [Suspect]
     Active Substance: TRIENTINE HYDROCHLORIDE
     Indication: HEPATO-LENTICULAR DEGENERATION
     Route: 065
     Dates: start: 2003, end: 2018
  2. ZINC. [Concomitant]
     Active Substance: ZINC
     Indication: HEPATO-LENTICULAR DEGENERATION

REACTIONS (3)
  - Blood copper increased [Unknown]
  - Nervous system disorder [Not Recovered/Not Resolved]
  - Ammonia increased [Unknown]

NARRATIVE: CASE EVENT DATE: 2021
